FAERS Safety Report 18199052 (Version 2)
Quarter: 2020Q3

REPORT INFORMATION
  Report Type: Other
  Country: DE (occurrence: DE)
  Receive Date: 20200826
  Receipt Date: 20200828
  Transmission Date: 20201103
  Serious: Yes (Other)
  Sender: FDA-Public Use
  Company Number: DE-MACLEODS PHARMACEUTICALS US LTD-MAC2020027781

PATIENT

DRUGS (7)
  1. MIRTAZAPIN [Suspect]
     Active Substance: MIRTAZAPINE
     Indication: PRODUCT USED FOR UNKNOWN INDICATION
     Dosage: 1.87 MILLIGRAM, QD, 1.87 [MG/D ]/ A 15 MG TABLET WAS DIVIDED SEVERAL TIMES BY THE PATIENT
     Route: 064
  2. INFLUVAC TETRA [Concomitant]
     Active Substance: INFLUENZA VIRUS VACCINE QUADRIVALENT TYPE A+B
     Indication: IMMUNISATION
     Dosage: UNK, 20.2. ? 20.2. GESTATIONAL WEEK,
     Route: 064
     Dates: start: 20191007, end: 20191007
  3. PARACETAMOL [Concomitant]
     Active Substance: ACETAMINOPHEN
     Indication: BACK PAIN
     Dosage: UNK, PRN, 500 [MG/D (AS NECESSARY)]/ TAKEN ON APPROXIMATELY 9 DAYS DURING THE ENTIRE PREGNANCY, 0. ?
     Route: 064
     Dates: start: 20190518, end: 20200221
  4. BUPROPION. [Concomitant]
     Active Substance: BUPROPION
     Indication: DEPRESSION
     Dosage: UNK, EXPOSURE: PATERNAL (FATHER ROUTE OF ADMIN. ORAL), THERAPY WAS PROBABLY ONGOING
     Route: 064
     Dates: start: 20190518, end: 20190805
  5. SYMBICORT [Concomitant]
     Active Substance: BUDESONIDE\FORMOTEROL FUMARATE DIHYDRATE
     Indication: ASTHMA
     Dosage: UNK, 320 [?G/D (BIS 160) ] / 9 [?G/D (BIS 4.5) ], 0. ? 39.6. GESTATIONAL WEEK
     Route: 064
     Dates: start: 20190518, end: 20200221
  6. L?THYROXIN [Concomitant]
     Active Substance: LEVOTHYROXINE SODIUM
     Indication: HYPOTHYROIDISM
     Dosage: 50 MICROGRAM, QD, 0. ? 37. GESTATIONAL WEEK
     Route: 064
  7. ESCITALOPRAM [Suspect]
     Active Substance: ESCITALOPRAM OXALATE
     Indication: PRODUCT USED FOR UNKNOWN INDICATION
     Dosage: 20 MILLIGRAM, QD, 0. ? 39.6. GESTATIONAL WEEK, 20 MG / D (BIS 10)
     Route: 064
     Dates: start: 20190518, end: 20200221

REACTIONS (7)
  - Drug withdrawal syndrome neonatal [Recovered/Resolved]
  - Atrial septal defect [Unknown]
  - Foetal exposure during pregnancy [Unknown]
  - Bradycardia neonatal [Recovered/Resolved]
  - Respiratory disorder neonatal [Recovered/Resolved]
  - Infantile apnoea [Recovered/Resolved]
  - Hypotonia [Recovered/Resolved]

NARRATIVE: CASE EVENT DATE: 20200221
